FAERS Safety Report 20962038 (Version 1)
Quarter: 2022Q2

REPORT INFORMATION
  Report Type: Report from Study
  Country: PL (occurrence: PL)
  Receive Date: 20220615
  Receipt Date: 20220615
  Transmission Date: 20220720
  Serious: Yes (Death)
  Sender: FDA-Public Use
  Company Number: PL-Merck Healthcare KGaA-9326240

PATIENT
  Sex: Female
  Weight: 73 kg

DRUGS (4)
  1. IRINOTECAN HYDROCHLORIDE [Suspect]
     Active Substance: IRINOTECAN HYDROCHLORIDE
     Indication: Colorectal cancer metastatic
     Dosage: 180 UNSPECIFIED UNIT
     Route: 042
     Dates: start: 20200420, end: 20210315
  2. CETUXIMAB [Suspect]
     Active Substance: CETUXIMAB
     Indication: Colorectal cancer metastatic
     Dosage: 500 MG/M2
     Route: 042
     Dates: start: 20200420, end: 20210519
  3. LEUCOVORIN [Suspect]
     Active Substance: LEUCOVORIN
     Indication: Colorectal cancer metastatic
     Dosage: 200 UNSPECIFIED UNIT
     Route: 042
     Dates: start: 20200420, end: 20210316
  4. FLUOROURACIL [Suspect]
     Active Substance: FLUOROURACIL
     Indication: Colorectal cancer metastatic
     Dosage: 1000 UNSPECIFIED UNIT
     Route: 042
     Dates: start: 20200420, end: 20210316

REACTIONS (1)
  - Death [Fatal]
